FAERS Safety Report 11236187 (Version 6)
Quarter: 2015Q4

REPORT INFORMATION
  Report Type: Spontaneous
  Country: US (occurrence: US)
  Receive Date: 20150702
  Receipt Date: 20151009
  Transmission Date: 20160304
  Serious: Yes (Hospitalization)
  Sender: FDA-Public Use
  Company Number: US-ACTELION-A-US2015-118250

PATIENT
  Age: 3 Month
  Sex: Male

DRUGS (2)
  1. SILDENAFIL. [Concomitant]
     Active Substance: SILDENAFIL
  2. TRACLEER [Suspect]
     Active Substance: BOSENTAN
     Indication: PULMONARY HYPERTENSION
     Dosage: 10 MG, BID
     Route: 048
     Dates: start: 20150316

REACTIONS (6)
  - Respiratory tract infection viral [Recovered/Resolved]
  - Pyrexia [Recovering/Resolving]
  - Skin warm [Recovering/Resolving]
  - Pneumonia [Recovering/Resolving]
  - Influenza [Unknown]
  - Dyspnoea [Recovering/Resolving]
